FAERS Safety Report 5139982-1 (Version None)
Quarter: 2006Q4

REPORT INFORMATION
  Report Type: 
  Country: None (occurrence: None)
  Receive Date: 20061031
  Receipt Date: 20060317
  Transmission Date: 20070319
  Serious: Yes (Death, Life-Threatening, Hospitalization)
  Sender: FDA-Public Use
  Company Number: US-BAYER-200611180BCC

PATIENT
  Age: 69 Year
  Sex: Female

DRUGS (6)
  1. ALEVE [Suspect]
     Indication: PAIN
     Dosage: UNIT DOSE: 220 MG
     Route: 048
     Dates: start: 20060307, end: 20060307
  2. PERCOCET [Concomitant]
  3. PORTABLE OXYGEN [Concomitant]
  4. COUMADIN [Concomitant]
  5. PREDNISONE TAB [Concomitant]
  6. OXYCONTIN [Concomitant]

REACTIONS (28)
  - ACUTE MYOCARDIAL INFARCTION [None]
  - ANAPHYLACTIC SHOCK [None]
  - APNOEA [None]
  - BRADYCARDIA [None]
  - BRONCHOSPASM [None]
  - CARDIO-RESPIRATORY ARREST [None]
  - CHEST PAIN [None]
  - ECCHYMOSIS [None]
  - ELECTROMECHANICAL DISSOCIATION [None]
  - EXCORIATION [None]
  - HAEMORRHAGE [None]
  - HYPOTENSION [None]
  - MYOCARDIAL ISCHAEMIA [None]
  - PHARMACEUTICAL PRODUCT COMPLAINT [None]
  - POST PROCEDURAL COMPLICATION [None]
  - POST PROCEDURAL HAEMORRHAGE [None]
  - PULMONARY OEDEMA [None]
  - PULSE ABSENT [None]
  - RENAL FAILURE [None]
  - RESPIRATORY ACIDOSIS [None]
  - RESPIRATORY ARREST [None]
  - RIB FRACTURE [None]
  - SKIN DISCOLOURATION [None]
  - SYNCOPE [None]
  - TONGUE OEDEMA [None]
  - TROPONIN INCREASED [None]
  - URTICARIA [None]
  - WHEEZING [None]
